FAERS Safety Report 20318935 (Version 1)
Quarter: 2022Q1

REPORT INFORMATION
  Report Type: Spontaneous
  Country: CN (occurrence: CN)
  Receive Date: 20220110
  Receipt Date: 20220110
  Transmission Date: 20220423
  Serious: Yes (Other)
  Sender: FDA-Public Use
  Company Number: CN-PFIZER INC-202200021234

PATIENT
  Age: 12 Year
  Sex: Female
  Weight: 33 kg

DRUGS (6)
  1. CYTARABINE [Suspect]
     Active Substance: CYTARABINE
     Indication: Acute myeloid leukaemia
     Dosage: 100 MG/M2, CYCLIC (D1-D5)
  2. TUCIDINOSTAT [Suspect]
     Active Substance: TUCIDINOSTAT
     Indication: Acute myeloid leukaemia
     Dosage: 20 MG, 2X/WEEK (D1-D14)
  3. DECITABINE [Suspect]
     Active Substance: DECITABINE
     Indication: Acute myeloid leukaemia
     Dosage: 20 MG/M2, CYCLIC (D1-D5)
  4. INVESTIGATIONAL PRODUCT [Suspect]
     Active Substance: INVESTIGATIONAL PRODUCT
     Indication: Acute myeloid leukaemia
     Dosage: 0.1 MG/KG, CYCLIC (D1)
  5. VORICONAZOLE [Concomitant]
     Active Substance: VORICONAZOLE
     Indication: Anti-infective therapy
     Dosage: UNK
  6. CEFACLOR [Concomitant]
     Active Substance: CEFACLOR
     Indication: Anti-infective therapy
     Dosage: UNK

REACTIONS (4)
  - Febrile neutropenia [Unknown]
  - Abdominal infection [Recovered/Resolved]
  - Electrolyte imbalance [Unknown]
  - Hypoalbuminaemia [Unknown]
